FAERS Safety Report 24402781 (Version 1)
Quarter: 2024Q4

REPORT INFORMATION
  Report Type: Spontaneous
  Country: FR (occurrence: FR)
  Receive Date: 20241007
  Receipt Date: 20241007
  Transmission Date: 20250115
  Serious: Yes (Other)
  Sender: GRIFOLS
  Company Number: None

PATIENT
  Age: 61 Year
  Sex: Male
  Weight: 87 kg

DRUGS (15)
  1. FLEBOGAMMA [Suspect]
     Active Substance: HUMAN IMMUNOGLOBULIN G
     Indication: Neuropathy peripheral
     Dosage: 2 GRAM PER KILOGRAM
     Route: 042
     Dates: start: 20240913, end: 20240918
  2. ACETAMINOPHEN [Concomitant]
     Active Substance: ACETAMINOPHEN
  3. TADALAFIL [Concomitant]
     Active Substance: TADALAFIL
  4. PRAVASTATIN SODIUM [Concomitant]
     Active Substance: PRAVASTATIN SODIUM
  5. ACETAMINOPHEN\OPIUM [Concomitant]
     Active Substance: ACETAMINOPHEN\OPIUM
  6. SKENAN [Concomitant]
     Active Substance: MORPHINE SULFATE
  7. DULOXETINE [Concomitant]
     Active Substance: DULOXETINE
  8. TELMISARTAN [Concomitant]
     Active Substance: TELMISARTAN
  9. MORPHINE SULFATE [Concomitant]
     Active Substance: MORPHINE SULFATE
     Dosage: UNK
  10. GABAPENTIN [Concomitant]
     Active Substance: GABAPENTIN
  11. KARDEGIC [Concomitant]
     Active Substance: ASPIRIN DL-LYSINE
  12. TITANOREINE [Concomitant]
     Active Substance: CARRAGEENAN\TITANIUM\ZINC
  13. IBUPROFEN [Concomitant]
     Active Substance: IBUPROFEN
  14. ESOMEPRAZOLE [Concomitant]
     Active Substance: ESOMEPRAZOLE
  15. SECTRAL [Concomitant]
     Active Substance: ACEBUTOLOL HYDROCHLORIDE

REACTIONS (1)
  - Neutropenia [Unknown]

NARRATIVE: CASE EVENT DATE: 20240917
